FAERS Safety Report 11939084 (Version 1)
Quarter: 2016Q1

REPORT INFORMATION
  Report Type: Spontaneous
  Country: US (occurrence: US)
  Receive Date: 20160122
  Receipt Date: 20160122
  Transmission Date: 20160526
  Serious: Yes (Death, Hospitalization, Other)
  Sender: FDA-Public Use
  Company Number: US-PFIZER INC-2016028406

PATIENT
  Age: 44 Year
  Sex: Male
  Weight: 73 kg

DRUGS (14)
  1. CITALOPRAM [Concomitant]
     Active Substance: CITALOPRAM HYDROBROMIDE
     Dosage: 20 MG, DAILY
  2. HYDROXYZINE [Concomitant]
     Active Substance: HYDROXYZINE\HYDROXYZINE HYDROCHLORIDE
     Dosage: 25 MG, EVERY 6 HOURS AS NEEDED
     Route: 048
  3. INSULIN [Concomitant]
     Active Substance: INSULIN NOS
     Indication: DIABETES MELLITUS
     Dosage: UNK
     Dates: end: 2013
  4. LEVAQUIN [Concomitant]
     Active Substance: LEVOFLOXACIN
     Dosage: 500 MG, 1X/DAY
     Route: 048
  5. LISINOPRIL. [Concomitant]
     Active Substance: LISINOPRIL
     Dosage: 20 MG, 1X/DAY
     Route: 048
  6. METOPROLOL SUCC ER [Concomitant]
     Active Substance: METOPROLOL SUCCINATE
     Dosage: 50 MG, 2X/DAY
     Route: 048
  7. ATARAX [Concomitant]
     Active Substance: HYDROXYZINE\HYDROXYZINE HYDROCHLORIDE
     Dosage: UNK
  8. GABAPENTIN. [Suspect]
     Active Substance: GABAPENTIN
     Indication: BURNING SENSATION
     Dosage: UNK
     Dates: start: 2010, end: 2013
  9. FOSRENOL [Concomitant]
     Active Substance: LANTHANUM CARBONATE
     Dosage: 1000 MG, 1X/DAY (WITH OR IMMEDIATELY AFTER MEALS.)
  10. TIZANIDINE HCL [Concomitant]
     Active Substance: TIZANIDINE HYDROCHLORIDE
     Dosage: 4 MG ONE TO TWO EVERY DAY
     Route: 048
  11. AVELOX [Concomitant]
     Active Substance: MOXIFLOXACIN HYDROCHLORIDE
     Dosage: 400 MG, EVERY 24 HOURS
     Route: 048
  12. RENAL [Concomitant]
     Dosage: 1 DF, DAILY
     Route: 048
  13. METOCLOPRAMIDE. [Concomitant]
     Active Substance: METOCLOPRAMIDE
     Dosage: 10 MG, 4X/DAY (TID AND AT BEDTIME)
     Route: 048
  14. LASIX [Concomitant]
     Active Substance: FUROSEMIDE
     Dosage: 40 MG, DAILY

REACTIONS (10)
  - Cerebrovascular accident [Unknown]
  - Hypertension [Unknown]
  - Seizure [Fatal]
  - Staphylococcal infection [Unknown]
  - Feeling abnormal [Unknown]
  - Renal failure [Unknown]
  - Pain [Unknown]
  - Limb injury [Unknown]
  - Herpes zoster [Unknown]
  - Abdominal discomfort [Unknown]

NARRATIVE: CASE EVENT DATE: 2011
